FAERS Safety Report 6299837-6 (Version None)
Quarter: 2009Q3

REPORT INFORMATION
  Report Type: 
  Country: None (occurrence: None)
  Receive Date: 20090806
  Receipt Date: 20090803
  Transmission Date: 20100115
  Serious: Yes (Death)
  Sender: FDA-Public Use
  Company Number: US-GENENTECH-279402

PATIENT
  Sex: Male

DRUGS (21)
  1. RANIBIZUMAB [Suspect]
     Indication: DIABETIC RETINAL OEDEMA
     Dosage: UNK
     Route: 031
     Dates: start: 20071030, end: 20081125
  2. SIMVASTATIN [Concomitant]
     Indication: HYPERCHOLESTEROLAEMIA
     Dosage: UNK
  3. LEVEMIR [Concomitant]
     Indication: DIABETES MELLITUS
     Dosage: UNK
  4. NOVOLOG [Concomitant]
     Indication: DIABETES MELLITUS
     Dosage: UNK
  5. DIOVAN [Concomitant]
     Indication: HYPERTENSION
     Dosage: UNK
  6. SYNTHROID [Concomitant]
     Indication: HYPOTHYROIDISM
     Dosage: UNK
  7. ALBUTEROL [Concomitant]
     Indication: CHRONIC OBSTRUCTIVE PULMONARY DISEASE
     Dosage: UNK
  8. METFORMIN [Concomitant]
     Indication: DIABETES MELLITUS
     Dosage: UNK
  9. CPAP [Concomitant]
     Indication: CHRONIC OBSTRUCTIVE PULMONARY DISEASE
     Dosage: UNK
  10. ASPIRIN [Concomitant]
     Indication: PROPHYLAXIS
     Dosage: UNK
  11. ARTIFICIAL TEARS [Concomitant]
     Indication: DRY EYE
     Dosage: UNK
  12. CLINDAMYCIN [Concomitant]
     Indication: PNEUMONIA
     Dosage: UNK
     Dates: start: 20081211
  13. DECADRON [Concomitant]
     Indication: CHRONIC OBSTRUCTIVE PULMONARY DISEASE
     Dosage: UNK
     Dates: start: 20081211
  14. COMBIVENT [Concomitant]
     Indication: CHRONIC OBSTRUCTIVE PULMONARY DISEASE
     Dosage: UNK
     Dates: start: 20081211
  15. FAMOTIDINE [Concomitant]
     Indication: PROPHYLAXIS
     Dosage: UNK
     Dates: start: 20081211
  16. CIPRO [Concomitant]
     Indication: PNEUMONIA
     Dosage: UNK
     Dates: start: 20081211
  17. CEFEPIME [Concomitant]
     Indication: PNEUMONIA
     Dosage: UNK
     Dates: start: 20081211
  18. HEPARIN [Concomitant]
     Indication: PROPHYLAXIS
     Dosage: UNK
     Dates: start: 20081211
  19. COLACE [Concomitant]
     Indication: PROPHYLAXIS
     Dosage: UNK
     Dates: start: 20081211
  20. FENTANYL [Concomitant]
     Indication: DRUG USE FOR UNKNOWN INDICATION
     Dosage: UNK
     Dates: start: 20081211
  21. PREDNISONE [Concomitant]
     Indication: PNEUMONIA
     Dosage: UNK
     Dates: start: 20081211

REACTIONS (1)
  - RENAL FAILURE ACUTE [None]
